FAERS Safety Report 14015425 (Version 1)
Quarter: 2017Q3

REPORT INFORMATION
  Report Type: Spontaneous
  Country: US (occurrence: US)
  Receive Date: 20170927
  Receipt Date: 20170927
  Transmission Date: 20171128
  Serious: Yes (Hospitalization)
  Sender: FDA-Public Use
  Company Number: US-THE MEDICINES COMPANY-US-MDCO-17-00454

PATIENT
  Age: 87 Year
  Sex: Male
  Weight: 86.64 kg

DRUGS (3)
  1. ORBACTIV [Suspect]
     Active Substance: ORITAVANCIN
     Indication: OSTEOMYELITIS
     Dosage: NOT REPORTED
     Route: 042
     Dates: start: 20170814, end: 20170814
  2. ORBACTIV [Suspect]
     Active Substance: ORITAVANCIN
     Route: 042
     Dates: start: 20170821, end: 20170821
  3. ORBACTIV [Suspect]
     Active Substance: ORITAVANCIN
     Route: 042
     Dates: start: 20170824, end: 20170824

REACTIONS (5)
  - Hypoxia [Recovering/Resolving]
  - Off label use [Recovering/Resolving]
  - Chills [Recovering/Resolving]
  - Hypertension [Recovering/Resolving]
  - Tachycardia [Recovering/Resolving]

NARRATIVE: CASE EVENT DATE: 20170821
